FAERS Safety Report 7739624-2 (Version None)
Quarter: 2011Q3

REPORT INFORMATION
  Report Type: 
  Country: None (occurrence: None)
  Receive Date: 20110909
  Receipt Date: 20110901
  Transmission Date: 20111222
  Serious: Yes (Hospitalization, Other)
  Sender: FDA-Public Use
  Company Number: US-AMGEN-USASP2011024221

PATIENT
  Age: 64 Year
  Sex: Male

DRUGS (2)
  1. ENBREL [Suspect]
     Indication: PSORIATIC ARTHROPATHY
     Dosage: 50 MG, QWK
     Dates: start: 20030101, end: 20101101
  2. COUMADIN [Concomitant]
     Dosage: UNK

REACTIONS (9)
  - WOUND DEHISCENCE [None]
  - NECROSIS [None]
  - FALL [None]
  - DEEP VEIN THROMBOSIS [None]
  - MEDICAL DEVICE COMPLICATION [None]
  - PSORIATIC ARTHROPATHY [None]
  - DRUG LEVEL INCREASED [None]
  - ARTHRALGIA [None]
  - CHOLANGITIS SCLEROSING [None]
